FAERS Safety Report 18886841 (Version 1)
Quarter: 2021Q1

REPORT INFORMATION
  Report Type: Spontaneous
  Country: US (occurrence: US)
  Receive Date: 20210212
  Receipt Date: 20210212
  Transmission Date: 20210420
  Serious: No
  Sender: FDA-Public Use
  Company Number: US-IBSA PHARMA INC.-2019IBS000221

PATIENT
  Age: 62 Year
  Sex: Female

DRUGS (8)
  1. TIROSINT?SOL [Suspect]
     Active Substance: LEVOTHYROXINE SODIUM
     Dosage: 112MCG/ML
     Route: 048
     Dates: start: 20191212
  2. TIROSINT?SOL [Suspect]
     Active Substance: LEVOTHYROXINE SODIUM
     Indication: HYPOTHYROIDISM
     Dosage: 112MCG/ML
     Route: 048
     Dates: start: 20191212
  3. TIROSINT?SOL [Suspect]
     Active Substance: LEVOTHYROXINE SODIUM
     Indication: HYPOTHYROIDISM
     Dosage: 100MCG/ML
     Route: 048
     Dates: start: 201904, end: 201912
  4. DEXILANT [Concomitant]
     Active Substance: DEXLANSOPRAZOLE
     Dosage: AS NEEDED
     Route: 048
  5. TIROSINT?SOL [Suspect]
     Active Substance: LEVOTHYROXINE SODIUM
     Indication: HYPOTHYROIDISM
     Dosage: 100MCG/ML
     Route: 048
     Dates: start: 201904, end: 201912
  6. TIROSINT?SOL [Suspect]
     Active Substance: LEVOTHYROXINE SODIUM
     Indication: HYPOTHYROIDISM
     Dosage: 88MCG/ML ONE DAY PER WEEK
     Route: 048
     Dates: start: 201904, end: 201912
  7. TIROSINT?SOL [Suspect]
     Active Substance: LEVOTHYROXINE SODIUM
     Dosage: 88MCG/ML, ONE DAY PER WEEK
     Route: 048
     Dates: start: 201904, end: 201912
  8. DEXILANT [Concomitant]
     Active Substance: DEXLANSOPRAZOLE
     Indication: GASTROOESOPHAGEAL REFLUX DISEASE
     Dosage: AS NEEDED
     Route: 048

REACTIONS (9)
  - Gastrooesophageal reflux disease [Unknown]
  - Illness [Unknown]
  - Malaise [Unknown]
  - Dysgeusia [Recovering/Resolving]
  - Zinc deficiency [Unknown]
  - Hyperthyroidism [Unknown]
  - Taste disorder [Unknown]
  - Hypothyroidism [Unknown]
  - Drug ineffective [Unknown]

NARRATIVE: CASE EVENT DATE: 201904
